FAERS Safety Report 6715357-6 (Version None)
Quarter: 2010Q2

REPORT INFORMATION
  Report Type: 
  Country: None (occurrence: None)
  Receive Date: 20100507
  Receipt Date: 20100507
  Transmission Date: 20101027
  Serious: Yes (Other)
  Sender: FDA-Public Use
  Company Number: None

PATIENT
  Age: 18 Month
  Sex: Male
  Weight: 11.3399 kg

DRUGS (3)
  1. TYLENOL CHILDRENS MCNEIL [Suspect]
     Indication: PAIN
     Dosage: MONTHLY PO
     Route: 048
     Dates: start: 20090815, end: 20100430
  2. TYLENOL CHILDRENS MCNEIL [Suspect]
     Indication: PYREXIA
     Dosage: MONTHLY PO
     Route: 048
     Dates: start: 20090815, end: 20100430
  3. BENADRYL [Suspect]
     Indication: MULTIPLE ALLERGIES
     Dosage: DR. RECOMMENDED DAILY PO
     Route: 048
     Dates: start: 20090815, end: 20100430

REACTIONS (5)
  - HEADACHE [None]
  - PRODUCT QUALITY ISSUE [None]
  - PYREXIA [None]
  - RESPIRATORY DISORDER [None]
  - VOMITING [None]
